FAERS Safety Report 5442426-3 (Version None)
Quarter: 2007Q3

REPORT INFORMATION
  Report Type: 
  Country: None (occurrence: None)
  Receive Date: 20070904
  Receipt Date: 20070823
  Transmission Date: 20080115
  Serious: Yes (Other)
  Sender: FDA-Public Use
  Company Number: FR-PFIZER INC-2007070589

PATIENT
  Age: 59 Year
  Sex: Male

DRUGS (4)
  1. LYRICA [Suspect]
     Indication: NEURALGIA
  2. MORPHINE SULFATE [Concomitant]
  3. BENZODIAZEPINE DERIVATIVES [Concomitant]
  4. ANTIDEPRESSANTS [Concomitant]

REACTIONS (2)
  - EYELID OEDEMA [None]
  - FACE OEDEMA [None]
